FAERS Safety Report 16691907 (Version 1)
Quarter: 2019Q3

REPORT INFORMATION
  Report Type: Spontaneous
  Country: DE (occurrence: DE)
  Receive Date: 20190812
  Receipt Date: 20190812
  Transmission Date: 20191004
  Serious: Yes (Hospitalization)
  Sender: FDA-Public Use
  Company Number: DE-ACCORD-151109

PATIENT
  Age: 77 Year
  Sex: Male

DRUGS (11)
  1. ZOLEDRONIC ACID [Concomitant]
     Active Substance: ZOLEDRONIC ACID
     Dosage: 4 MG, 1-0-0, EVERY 4 WEEKS, SOLUTION FOR INJECTION / INFUSION
     Route: 042
  2. METOPROLOL. [Concomitant]
     Active Substance: METOPROLOL
     Dosage: 47.5 MG, 1-0-0, TABLETTEN
     Route: 048
  3. ENALAPRIL [Concomitant]
     Active Substance: ENALAPRIL
     Dosage: 5 MG, 1/2-0-0, TABLETTEN
     Route: 048
  4. ONDANSETRON [Concomitant]
     Active Substance: ONDANSETRON
     Dosage: 8 MG, B.B., TABLETTEN
     Route: 048
  5. PREDNISOLONE. [Concomitant]
     Active Substance: PREDNISOLONE
     Dosage: 5 MG, 1-0-1, TABLETTEN
     Route: 048
  6. PANTOPRAZOLE [Concomitant]
     Active Substance: PANTOPRAZOLE
     Dosage: 40 MG, 1-0-0, TABLETTEN
     Route: 048
  7. BICALUTAMIDE. [Concomitant]
     Active Substance: BICALUTAMIDE
     Dosage: TABLETTEN
     Route: 048
  8. DOCETAXEL. [Suspect]
     Active Substance: DOCETAXEL
     Indication: PRODUCT USED FOR UNKNOWN INDICATION
     Dosage: 75 MG / M2, EVERY 22 DAYS
     Route: 042
  9. LEUPRORELIN/LEUPRORELIN ACETATE [Concomitant]
     Dosage: INJECTION / INFUSION
     Route: 058
  10. ATORVASTATIN [Concomitant]
     Active Substance: ATORVASTATIN
     Dosage: 40 MG / TAG, 0-0-1, TABLETTEN
     Route: 048
  11. BICALUTAMIDE. [Concomitant]
     Active Substance: BICALUTAMIDE
     Dosage: 50 MG, 0-0-1, TABLET
     Route: 048

REACTIONS (5)
  - Vomiting [Unknown]
  - Nausea [Unknown]
  - Abdominal discomfort [Unknown]
  - General physical health deterioration [Unknown]
  - Pain [Unknown]
